FAERS Safety Report 4876586-X (Version None)
Quarter: 2005Q4

REPORT INFORMATION
  Report Type: 
  Country: None (occurrence: None)
  Receive Date: 20051206
  Receipt Date: 20051020
  Transmission Date: 20060501
  Serious: No
  Sender: FDA-Public Use
  Company Number: USA0510111457

PATIENT
  Age: 62 Year
  Sex: Female

DRUGS (2)
  1. CYMBALTA [Suspect]
     Indication: ANXIETY
     Dosage: 60 MG
     Dates: start: 20051017
  2. CLONAZEPM [Concomitant]

REACTIONS (1)
  - MEDICATION ERROR [None]
